FAERS Safety Report 6077722-2 (Version None)
Quarter: 2009Q1

REPORT INFORMATION
  Report Type: 
  Country: None (occurrence: None)
  Receive Date: 20090213
  Receipt Date: 20090202
  Transmission Date: 20090719
  Serious: Yes (Hospitalization, Other)
  Sender: FDA-Public Use
  Company Number: CHPA2009GB01128

PATIENT
  Sex: Male

DRUGS (1)
  1. VOLTAROL PAIN- EZE(NCH) [Suspect]
     Indication: ARTHRALGIA
     Dosage: 25 MG, ONCE/SINGLE
     Route: 048
     Dates: start: 20090124, end: 20090124

REACTIONS (16)
  - ASTHENIA [None]
  - BLOOD URINE PRESENT [None]
  - COORDINATION ABNORMAL [None]
  - DIARRHOEA [None]
  - DYSPNOEA [None]
  - EYE SWELLING [None]
  - FEELING DRUNK [None]
  - HEADACHE [None]
  - IMPAIRED WORK ABILITY [None]
  - MEMORY IMPAIRMENT [None]
  - POLLAKIURIA [None]
  - PRODUCTIVE COUGH [None]
  - PRURITUS [None]
  - SWELLING FACE [None]
  - SWOLLEN TONGUE [None]
  - VISION BLURRED [None]
